FAERS Safety Report 18456716 (Version 1)
Quarter: 2020Q4

REPORT INFORMATION
  Report Type: Report from Study
  Country: CA (occurrence: CA)
  Receive Date: 20201103
  Receipt Date: 20201103
  Transmission Date: 20210114
  Serious: Yes (Hospitalization)
  Sender: FDA-Public Use
  Company Number: CA-JNJFOC-20201034818

PATIENT
  Age: 82 Year
  Sex: Female

DRUGS (15)
  1. TRACLEER [Suspect]
     Active Substance: BOSENTAN
     Indication: PULMONARY HYPERTENSION
     Route: 065
     Dates: start: 20181008, end: 20200929
  2. REVATIO [Suspect]
     Active Substance: SILDENAFIL CITRATE
     Indication: PULMONARY ARTERIAL HYPERTENSION
     Route: 048
     Dates: start: 20180529
  3. UPTRAVI [Concomitant]
     Active Substance: SELEXIPAG
  4. RISEDRONATE [Concomitant]
     Active Substance: RISEDRONATE SODIUM
  5. VITAMIN D                          /00107901/ [Concomitant]
     Active Substance: ERGOCALCIFEROL
  6. TRIAMTERENE. [Concomitant]
     Active Substance: TRIAMTERENE
  7. CRESTOR [Concomitant]
     Active Substance: ROSUVASTATIN CALCIUM
  8. OPSUMIT [Suspect]
     Active Substance: MACITENTAN
     Indication: PULMONARY HYPERTENSION
     Route: 048
     Dates: start: 20200930, end: 202010
  9. OXAZEPAM. [Concomitant]
     Active Substance: OXAZEPAM
  10. AMLODIPINE [Concomitant]
     Active Substance: AMLODIPINE BESYLATE
  11. L-THYROXINE                        /00068001/ [Concomitant]
     Active Substance: LEVOTHYROXINE
  12. PREVACID [Concomitant]
     Active Substance: LANSOPRAZOLE
  13. OXYGEN. [Concomitant]
     Active Substance: OXYGEN
     Dosage: 4-5 LITRES
  14. INDACATEROL MALEATE [Concomitant]
     Active Substance: INDACATEROL MALEATE
  15. VITAMIN C [Concomitant]
     Active Substance: ASCORBIC ACID

REACTIONS (6)
  - Illness [Unknown]
  - Chest discomfort [Unknown]
  - Dyspnoea [Not Recovered/Not Resolved]
  - Choking [Unknown]
  - Blood potassium decreased [Unknown]
  - Blood sodium decreased [Unknown]

NARRATIVE: CASE EVENT DATE: 202001
